FAERS Safety Report 9289265 (Version 2)
Quarter: 2013Q2

REPORT INFORMATION
  Report Type: Report from Study
  Country: US (occurrence: US)
  Receive Date: 20130514
  Receipt Date: 20130531
  Transmission Date: 20140414
  Serious: Yes (Other)
  Sender: FDA-Public Use
  Company Number: US-US-EMD SERONO, INC.-7209848

PATIENT
  Sex: Male
  Weight: 46 kg

DRUGS (1)
  1. SAIZEN [(SOMATROPIN (RDNA ORIGIN) FOR INJECTION)] [Suspect]
     Indication: OFF LABEL USE
     Route: 058
     Dates: start: 20090119

REACTIONS (13)
  - Nephrocalcinosis [Unknown]
  - Vesicoureteric reflux [Unknown]
  - Nephrolithiasis [Unknown]
  - Colitis ulcerative [Unknown]
  - Crohn^s disease [Unknown]
  - Colonic fistula [Unknown]
  - Abscess intestinal [Unknown]
  - Post procedural pneumonia [Unknown]
  - Amblyopia [Unknown]
  - Encopresis [Unknown]
  - Enuresis [Unknown]
  - Acne cystic [Unknown]
  - Asthma [Recovering/Resolving]
